FAERS Safety Report 5407003-9 (Version None)
Quarter: 2007Q3

REPORT INFORMATION
  Report Type: 
  Country: None (occurrence: None)
  Receive Date: 20070803
  Receipt Date: 20070803
  Transmission Date: 20080115
  Serious: Yes (Hospitalization)
  Sender: FDA-Public Use
  Company Number: None

PATIENT
  Age: 48 Year
  Sex: Male

DRUGS (2)
  1. IBUPROFEN TABLETS [Suspect]
     Indication: INJURY
     Dosage: 600MG TID PO
     Route: 048
     Dates: start: 20070714, end: 20070722
  2. IBUPROFEN TABLETS [Suspect]
     Indication: PAIN
     Dosage: 600MG TID PO
     Route: 048
     Dates: start: 20070714, end: 20070722

REACTIONS (5)
  - FALL [None]
  - FREQUENT BOWEL MOVEMENTS [None]
  - GASTRIC HAEMORRHAGE [None]
  - MELAENA [None]
  - PORTAL HYPERTENSIVE GASTROPATHY [None]
